FAERS Safety Report 15820307 (Version 1)
Quarter: 2019Q1

REPORT INFORMATION
  Report Type: Spontaneous
  Country: US (occurrence: US)
  Receive Date: 20190114
  Receipt Date: 20190114
  Transmission Date: 20190417
  Serious: Yes (Death)
  Sender: FDA-Public Use
  Company Number: US-MICRO LABS LIMITED-ML2019-00033

PATIENT
  Age: 45 Year
  Sex: Male

DRUGS (5)
  1. BENZOYLECGONINE [Suspect]
     Active Substance: BENZOYLECGONINE
  2. ALCOHOL. [Suspect]
     Active Substance: ALCOHOL
  3. CYCLOPROPYLFENTANYL [Suspect]
     Active Substance: CYCLOPROPYLFENTANYL
  4. DIPHENHYDRAMINE HYDROCHLORIDE. [Suspect]
     Active Substance: DIPHENHYDRAMINE HYDROCHLORIDE
  5. COCAINE [Suspect]
     Active Substance: COCAINE

REACTIONS (1)
  - Toxicity to various agents [Fatal]
